FAERS Safety Report 5112671-5 (Version None)
Quarter: 2006Q3

REPORT INFORMATION
  Report Type: 
  Country: None (occurrence: None)
  Receive Date: 20060920
  Receipt Date: 20060920
  Transmission Date: 20061208
  Serious: Yes (Other)
  Sender: FDA-Public Use
  Company Number: None

PATIENT
  Sex: Female
  Weight: 72.5755 kg

DRUGS (2)
  1. SERTRALINE HCL [Suspect]
     Indication: ANXIETY
     Dosage: 1 TABLET BY MOUTH ONCE EVERY MORNING PO
     Route: 048
     Dates: start: 20060908, end: 20060910
  2. SERTRALINE HCL [Suspect]
     Indication: DEPRESSION
     Dosage: 1 TABLET BY MOUTH ONCE EVERY MORNING PO
     Route: 048
     Dates: start: 20060908, end: 20060910

REACTIONS (4)
  - PHARMACEUTICAL PRODUCT COMPLAINT [None]
  - PSYCHOMOTOR HYPERACTIVITY [None]
  - THERAPEUTIC RESPONSE UNEXPECTED WITH DRUG SUBSTITUTION [None]
  - TREMOR [None]
